FAERS Safety Report 17578153 (Version 1)
Quarter: 2020Q1

REPORT INFORMATION
  Report Type: Report from Study
  Country: TH (occurrence: TH)
  Receive Date: 20200324
  Receipt Date: 20200324
  Transmission Date: 20200409
  Serious: Yes (Hospitalization)
  Sender: FDA-Public Use
  Company Number: TH-BAYER-2020-047024

PATIENT
  Sex: Female

DRUGS (1)
  1. STIVARGA [Suspect]
     Active Substance: REGORAFENIB
     Indication: GASTROINTESTINAL STROMAL TUMOUR
     Dosage: 40 MG DAILY
     Route: 048
     Dates: start: 20200204, end: 20200312

REACTIONS (5)
  - Constipation [None]
  - Fatigue [None]
  - Pyrexia [Recovering/Resolving]
  - Hypophagia [Recovering/Resolving]
  - Dry mouth [None]

NARRATIVE: CASE EVENT DATE: 20200311
